FAERS Safety Report 8623603 (Version 2)
Quarter: 2012Q4

REPORT INFORMATION
  Report Type: 
  Country: GB (occurrence: GB)
  Receive Date: 20120620
  Receipt Date: 20120918
  Transmission Date: 20130627
  Serious: Yes (Disabling, Other)
  Sender: FDA-Public Use
  Company Number: GB-PFIZER INC-2012146360

PATIENT
  Age: 78 Year
  Sex: Female

DRUGS (6)
  1. AMIODARONE HCL [Suspect]
     Dosage: 200 mg, 2x/day
     Dates: start: 20120516, end: 2012
  2. FUROSEMIDE [Concomitant]
     Dosage: UNK
  3. DIGOXIN [Concomitant]
     Dosage: UNK
  4. BISOPROLOL [Concomitant]
     Dosage: UNK
  5. LANSOPRAZOLE [Concomitant]
     Dosage: UNK
  6. WARFARIN [Concomitant]
     Dosage: UNK

REACTIONS (4)
  - Corneal opacity [Unknown]
  - Dysgeusia [Unknown]
  - Tongue coated [Unknown]
  - Tongue dry [Unknown]
